FAERS Safety Report 23544628 (Version 1)
Quarter: 2024Q1

REPORT INFORMATION
  Report Type: Spontaneous
  Country: US (occurrence: None)
  Receive Date: 20240216
  Receipt Date: 20240216
  Transmission Date: 20240409
  Serious: Yes (Other)
  Sender: FDA-Public Use
  Company Number: None

PATIENT
  Age: 80 Year
  Sex: Female
  Weight: 58.97 kg

DRUGS (14)
  1. NASONEX [Suspect]
     Active Substance: MOMETASONE FUROATE
     Indication: Nasal congestion
     Dosage: FREQUENCY : DAILY;?
     Route: 055
     Dates: start: 20240112, end: 20240113
  2. PROFENAL [Suspect]
     Active Substance: SUPROFEN
  3. FENTANYL [Suspect]
     Active Substance: FENTANYL\FENTANYL CITRATE
  4. AMIODARONE [Concomitant]
     Active Substance: AMIODARONE
  5. ELIQUIS [Concomitant]
     Active Substance: APIXABAN
  6. BUMEX [Concomitant]
     Active Substance: BUMETANIDE
  7. ENTRESTO [Concomitant]
     Active Substance: SACUBITRIL\VALSARTAN
  8. SPIRONOLACTONE [Concomitant]
     Active Substance: SPIRONOLACTONE
  9. VITAMIN D3 [Concomitant]
     Active Substance: CHOLECALCIFEROL
  10. VITAMIN C [Concomitant]
     Active Substance: ASCORBIC ACID
  11. METOPROLOL [Concomitant]
     Active Substance: METOPROLOL
  12. TYLENOL [Concomitant]
     Active Substance: ACETAMINOPHEN
  13. VIT B 12 [Concomitant]
  14. CALCIUM [Concomitant]
     Active Substance: CALCIUM

REACTIONS (8)
  - Fatigue [None]
  - Feeling jittery [None]
  - Psychomotor hyperactivity [None]
  - Dysarthria [None]
  - Disturbance in attention [None]
  - Anxiety [None]
  - Therapy cessation [None]
  - Feeling hot [None]

NARRATIVE: CASE EVENT DATE: 20240113
